FAERS Safety Report 23984857 (Version 3)
Quarter: 2024Q3

REPORT INFORMATION
  Report Type: Report from Study
  Country: KR (occurrence: KR)
  Receive Date: 20240618
  Receipt Date: 20240702
  Transmission Date: 20241017
  Serious: Yes (Hospitalization)
  Sender: ABBVIE
  Company Number: KR-ABBVIE-5800598

PATIENT
  Age: 80 Year
  Sex: Female
  Weight: 62 kg

DRUGS (63)
  1. VENCLEXTA [Suspect]
     Active Substance: VENETOCLAX
     Indication: Acute myeloid leukaemia
     Route: 048
     Dates: start: 20240412, end: 20240430
  2. VENCLEXTA [Suspect]
     Active Substance: VENETOCLAX
     Indication: Acute myeloid leukaemia
     Route: 048
     Dates: start: 20240501, end: 20240606
  3. VENCLEXTA [Suspect]
     Active Substance: VENETOCLAX
     Indication: Acute myeloid leukaemia
     Route: 048
     Dates: start: 20240617
  4. MIRTAZAPINE [Suspect]
     Active Substance: MIRTAZAPINE
     Indication: Insomnia
     Dosage: 0.5 DOSAGE FORM
     Route: 048
     Dates: start: 20240607, end: 20240607
  5. DACOGEN [Concomitant]
     Active Substance: DECITABINE
     Indication: Acute myeloid leukaemia
     Route: 042
     Dates: start: 20240412, end: 20240416
  6. DACOGEN [Concomitant]
     Active Substance: DECITABINE
     Indication: Acute myeloid leukaemia
     Route: 042
     Dates: start: 20240510, end: 20240514
  7. DACOGEN [Concomitant]
     Active Substance: DECITABINE
     Indication: Acute myeloid leukaemia
     Route: 042
     Dates: start: 20240617
  8. VESICARE [Concomitant]
     Active Substance: SOLIFENACIN SUCCINATE
     Indication: Urinary retention
     Route: 048
     Dates: start: 20240521, end: 20240612
  9. VESICARE [Concomitant]
     Active Substance: SOLIFENACIN SUCCINATE
     Indication: Urinary retention
     Route: 048
     Dates: start: 20240613
  10. HEPARIN [Concomitant]
     Active Substance: HEPARIN SODIUM
     Indication: Hepatobiliary disorder prophylaxis
     Route: 048
     Dates: start: 20240415, end: 20240422
  11. Esomezol [Concomitant]
     Indication: Abdominal pain upper
     Route: 048
     Dates: start: 20240417, end: 20240520
  12. Esomezol [Concomitant]
     Indication: Abdominal pain upper
     Route: 048
     Dates: start: 20240614
  13. VITAMINS [Concomitant]
     Active Substance: VITAMINS
     Indication: Vitamin supplementation
     Dosage: UNIT DOSE: 1 VIAL
     Route: 042
     Dates: start: 20240413, end: 20240414
  14. NOXAFIL [Concomitant]
     Active Substance: POSACONAZOLE
     Indication: Antifungal prophylaxis
     Dosage: GASTRO RESISTANT TAB 100 MG
     Route: 048
     Dates: start: 20240413, end: 20240413
  15. NOXAFIL [Concomitant]
     Active Substance: POSACONAZOLE
     Indication: Antifungal prophylaxis
     Dosage: GASTRO RESISTANT TAB 100 MG
     Route: 048
     Dates: start: 20240414, end: 20240430
  16. NOXAFIL [Concomitant]
     Active Substance: POSACONAZOLE
     Indication: Antifungal prophylaxis
     Dosage: GASTRO RESISTANT TAB 100 MG
     Route: 048
     Dates: start: 20240617, end: 20240617
  17. NOXAFIL [Concomitant]
     Active Substance: POSACONAZOLE
     Indication: Antifungal prophylaxis
     Dosage: GASTRO RESISTANT TAB 100 MG
     Route: 048
     Dates: start: 20240618
  18. Dulackhan easy [Concomitant]
     Indication: Constipation
     Route: 048
     Dates: start: 20240607, end: 20240611
  19. Dulackhan easy [Concomitant]
     Indication: Constipation
     Route: 048
     Dates: start: 20240617, end: 20240620
  20. METOCLOPRAMIDE HYDROCHLORIDE [Concomitant]
     Active Substance: METOCLOPRAMIDE HYDROCHLORIDE
     Indication: Nausea
     Dosage: FREQUENCY TEXT: PRN
     Route: 042
     Dates: start: 20240418, end: 20240428
  21. ANAPROX [Concomitant]
     Active Substance: NAPROXEN SODIUM
     Indication: Abdominal pain
     Route: 048
     Dates: start: 20240417, end: 20240423
  22. ANAPROX [Concomitant]
     Active Substance: NAPROXEN SODIUM
     Indication: Abdominal pain
     Route: 048
     Dates: start: 20240614, end: 20240619
  23. MUCOBARRIER [Concomitant]
     Indication: Prophylaxis
     Dosage: TIME INTERVAL: AS NECESSARY: MOUTH WASH?FREQUENCY TEXT: PRN
     Route: 050
     Dates: start: 20240607
  24. MEGACE F [Concomitant]
     Indication: Prophylaxis
     Dosage: SUSPENSION
     Route: 048
     Dates: start: 20240430, end: 20240510
  25. MEGACE F [Concomitant]
     Indication: Prophylaxis
     Dosage: SUSPENSION
     Route: 048
     Dates: start: 20240614, end: 20240621
  26. ANEPOL [Concomitant]
     Indication: Premedication
     Route: 042
     Dates: start: 20240412, end: 20240412
  27. MAGNESIUM HYDROXIDE [Concomitant]
     Active Substance: MAGNESIUM HYDROXIDE
     Indication: Constipation
     Dosage: 500 MG
     Route: 048
     Dates: start: 20240410, end: 20240413
  28. MAGNESIUM HYDROXIDE [Concomitant]
     Active Substance: MAGNESIUM HYDROXIDE
     Indication: Constipation
     Dosage: 500MG
     Route: 048
     Dates: start: 20240614
  29. DICHLOZID [Concomitant]
     Indication: Hypertension
     Route: 048
     Dates: start: 20240423, end: 20240426
  30. PROPRANOLOL HYDROCHLORIDE [Concomitant]
     Active Substance: PROPRANOLOL HYDROCHLORIDE
     Indication: Tremor
     Route: 048
     Dates: start: 20240511, end: 20240514
  31. PROPRANOLOL HYDROCHLORIDE [Concomitant]
     Active Substance: PROPRANOLOL HYDROCHLORIDE
     Indication: Tremor
     Route: 048
     Dates: start: 20240524, end: 20240621
  32. PROPRANOLOL HYDROCHLORIDE [Concomitant]
     Active Substance: PROPRANOLOL HYDROCHLORIDE
     Indication: Tremor
     Route: 048
     Dates: start: 20240508, end: 20240510
  33. Diclomed [Concomitant]
     Indication: Prophylaxis
     Dosage: TIME INTERVAL: AS NECESSARY: SOLUTION  0.074%?FREQUENCY TEXT: PRN
     Route: 050
     Dates: start: 20240607
  34. ATACAND [Concomitant]
     Active Substance: CANDESARTAN CILEXETIL
     Indication: Hypertension
     Route: 048
     Dates: start: 20240427
  35. LEVOFLOXACIN [Concomitant]
     Active Substance: LEVOFLOXACIN
     Indication: Infection prophylaxis
     Dosage: 500 MG
     Route: 048
     Dates: start: 20240607, end: 20240610
  36. LEVOFLOXACIN [Concomitant]
     Active Substance: LEVOFLOXACIN
     Indication: Infection prophylaxis
     Route: 048
     Dates: start: 20240621
  37. DIFLUCAN [Concomitant]
     Active Substance: FLUCONAZOLE
     Indication: Antifungal prophylaxis
     Dosage: 50 MG
     Route: 048
     Dates: start: 20240501
  38. BANAN [Concomitant]
     Active Substance: CEFPODOXIME PROXETIL
     Indication: Infection prophylaxis
     Route: 048
     Dates: start: 20240621
  39. PENIRAMIN [Concomitant]
     Indication: Premedication
     Dosage: AS NEEDED
     Route: 042
     Dates: start: 20240611, end: 20240611
  40. PENIRAMIN [Concomitant]
     Indication: Premedication
     Dosage: AS NEEDED
     Route: 042
     Dates: start: 20240531, end: 20240531
  41. PENIRAMIN [Concomitant]
     Indication: Premedication
     Dosage: TIME INTERVAL: AS NECESSARY: FREQUENCY TEXT: PRN
     Route: 042
     Dates: start: 20240410
  42. Levoplus [Concomitant]
     Indication: Infection prophylaxis
     Route: 048
     Dates: start: 20240417
  43. NEUPOGEN [Concomitant]
     Active Substance: FILGRASTIM
     Indication: Neutrophil count decreased
     Dosage: 150 G/0.6ML
     Route: 058
     Dates: start: 20240607, end: 20240607
  44. PENIRAMIN [Concomitant]
     Indication: Insomnia
     Route: 048
     Dates: start: 20240419, end: 20240422
  45. Furix [Concomitant]
     Indication: Cardiac failure
     Route: 048
     Dates: start: 20240427, end: 20240610
  46. TRAZODONE HYDROCHLORIDE [Concomitant]
     Active Substance: TRAZODONE HYDROCHLORIDE
     Indication: Insomnia
     Route: 048
     Dates: start: 20240421, end: 20240502
  47. TRAZODONE HYDROCHLORIDE [Concomitant]
     Active Substance: TRAZODONE HYDROCHLORIDE
     Indication: Insomnia
     Route: 048
     Dates: start: 20240503, end: 20240520
  48. TRAZODONE HYDROCHLORIDE [Concomitant]
     Active Substance: TRAZODONE HYDROCHLORIDE
     Indication: Insomnia
     Route: 048
     Dates: start: 20240531
  49. JARDIANCE [Concomitant]
     Active Substance: EMPAGLIFLOZIN
     Indication: Cardiac failure
     Route: 048
     Dates: start: 20240426, end: 20240621
  50. MIDACUM [Concomitant]
     Indication: Premedication
     Dosage: 5 MG
     Route: 042
     Dates: start: 20240412, end: 20240412
  51. GASTER [Concomitant]
     Active Substance: FAMOTIDINE
     Indication: Abdominal pain upper
     Route: 042
     Dates: start: 20240417, end: 20240417
  52. LASIX [Concomitant]
     Active Substance: FUROSEMIDE
     Indication: Prophylaxis
     Route: 042
     Dates: start: 20240617, end: 20240617
  53. PREDNISOLONE [Concomitant]
     Active Substance: PREDNISOLONE
     Indication: Thrombocytopenia
     Route: 048
     Dates: start: 20240519
  54. TRAMADOL HYDROCHLORIDE [Concomitant]
     Active Substance: TRAMADOL HYDROCHLORIDE
     Indication: Headache
     Dosage: DOSAGE: 50 MG/ML
     Route: 042
     Dates: start: 20240517, end: 20240519
  55. TRAMADOL HYDROCHLORIDE [Concomitant]
     Active Substance: TRAMADOL HYDROCHLORIDE
     Indication: Headache
     Dosage: DOSAGE: 50 MG/ML
     Route: 042
     Dates: start: 20240512, end: 20240512
  56. TRAMADOL HYDROCHLORIDE [Concomitant]
     Active Substance: TRAMADOL HYDROCHLORIDE
     Indication: Headache
     Dosage: DOSAGE: 50 MG/ML
     Route: 042
     Dates: start: 20240410, end: 20240416
  57. TRAMADOL HYDROCHLORIDE [Concomitant]
     Active Substance: TRAMADOL HYDROCHLORIDE
     Indication: Headache
     Dosage: DOSAGE: 50 MG/ML
     Route: 042
     Dates: start: 20240516, end: 20240516
  58. HEPACON [Concomitant]
     Indication: Prophylaxis
     Route: 048
     Dates: start: 20240415, end: 20240422
  59. NORVASC [Concomitant]
     Active Substance: AMLODIPINE BESYLATE
     Indication: Hypertension
     Route: 048
     Dates: start: 20240423, end: 20240520
  60. Kukje ceftriaxone na [Concomitant]
     Indication: Pyrexia
     Route: 042
     Dates: start: 20240410, end: 20240417
  61. MIRAPEX [Concomitant]
     Active Substance: PRAMIPEXOLE DIHYDROCHLORIDE
     Indication: Restless legs syndrome
     Route: 048
     Dates: start: 20240422, end: 20240621
  62. Dulackhan [Concomitant]
     Indication: Constipation
     Dosage: TIME INTERVAL: 0.33333333 DAYS
     Route: 048
     Dates: start: 20240505, end: 20240507
  63. Dulackhan [Concomitant]
     Indication: Constipation
     Dosage: TIME INTERVAL: 0.33333333 DAYS
     Route: 048
     Dates: start: 20240508, end: 20240520

REACTIONS (2)
  - Syncope [Recovered/Resolved]
  - Pneumonia [Recovered/Resolved]

NARRATIVE: CASE EVENT DATE: 20240608
